FAERS Safety Report 6829655-9 (Version None)
Quarter: 2010Q3

REPORT INFORMATION
  Report Type: 
  Country: None (occurrence: None)
  Receive Date: 20100709
  Receipt Date: 20070505
  Transmission Date: 20110219
  Serious: No
  Sender: FDA-Public Use
  Company Number: US-PFIZER INC-2007014946

PATIENT
  Sex: Female
  Weight: 61.23 kg

DRUGS (12)
  1. CHANTIX [Suspect]
     Indication: NICOTINE DEPENDENCE
     Route: 048
     Dates: start: 20070101, end: 20070201
  2. CHANTIX [Suspect]
  3. NABUMETONE [Concomitant]
  4. CARBAMAZEPINE [Concomitant]
  5. BACLOFEN [Concomitant]
  6. TRAZODONE [Concomitant]
  7. EFFEXOR [Concomitant]
  8. HYDROCODONE BITARTRATE [Concomitant]
  9. ALL OTHER THERAPEUTIC PRODUCTS [Concomitant]
  10. ACETAMINOPHEN AND HYDROCODONE BITARTRATE [Concomitant]
  11. VENLAFAXINE [Concomitant]
  12. NASONEX [Concomitant]

REACTIONS (4)
  - NICOTINE DEPENDENCE [None]
  - OEDEMA PERIPHERAL [None]
  - PARAESTHESIA [None]
  - WEIGHT INCREASED [None]
